FAERS Safety Report 25067883 (Version 2)
Quarter: 2025Q1

REPORT INFORMATION
  Report Type: Report from Study
  Country: US (occurrence: US)
  Receive Date: 20250312
  Receipt Date: 20250318
  Transmission Date: 20250408
  Serious: Yes (Other)
  Sender: NOVARTIS
  Company Number: US-002147023-NVSC2024US188776

PATIENT
  Sex: Female

DRUGS (1)
  1. KESIMPTA [Suspect]
     Active Substance: OFATUMUMAB
     Indication: Product used for unknown indication
     Route: 065

REACTIONS (10)
  - Rheumatoid arthritis [Not Recovered/Not Resolved]
  - Pain [Unknown]
  - Arthralgia [Unknown]
  - Multiple sclerosis [Unknown]
  - Anxiety [Unknown]
  - Photosensitivity reaction [Unknown]
  - Rash [Unknown]
  - Swelling face [Unknown]
  - Decreased immune responsiveness [Unknown]
  - Asthma [Not Recovered/Not Resolved]
